FAERS Safety Report 19869415 (Version 3)
Quarter: 2021Q4

REPORT INFORMATION
  Report Type: Spontaneous
  Country: US (occurrence: US)
  Receive Date: 20210922
  Receipt Date: 20211125
  Transmission Date: 20220303
  Serious: Yes (Other)
  Sender: FDA-Public Use
  Company Number: US-NOVOPROD-847576

PATIENT
  Sex: Male

DRUGS (1)
  1. INSULIN ASPART [Suspect]
     Active Substance: INSULIN ASPART
     Indication: Product used for unknown indication
     Dosage: 5 UNITS
     Route: 058
     Dates: start: 202109

REACTIONS (2)
  - Visual impairment [Not Recovered/Not Resolved]
  - Circumstance or information capable of leading to medication error [Unknown]
